FAERS Safety Report 7551711-0 (Version None)
Quarter: 2011Q2

REPORT INFORMATION
  Report Type: 
  Country: None (occurrence: None)
  Receive Date: 20110616
  Receipt Date: 20110610
  Transmission Date: 20111010
  Serious: Yes (Death, Hospitalization)
  Sender: FDA-Public Use
  Company Number: A0788357A

PATIENT
  Age: 72 Year
  Sex: Male

DRUGS (2)
  1. AVANDAMET [Suspect]
     Route: 048
  2. AVANDIA [Suspect]
     Route: 048

REACTIONS (4)
  - HEART INJURY [None]
  - DEATH [None]
  - CEREBROVASCULAR ACCIDENT [None]
  - PARALYSIS [None]
